FAERS Safety Report 8561617-6 (Version None)
Quarter: 2012Q3

REPORT INFORMATION
  Report Type: 
  Country: None (occurrence: None)
  Receive Date: 20120727
  Receipt Date: 20120727
  Transmission Date: 20120928
  Serious: Yes (Hospitalization)
  Sender: FDA-Public Use
  Company Number: None

PATIENT
  Age: 88 Year
  Sex: Female
  Weight: 70.9 kg

DRUGS (13)
  1. LIPITOR [Concomitant]
  2. ACETONIDE HCTZ [Concomitant]
  3. XANAX [Concomitant]
  4. COUMADIN [Suspect]
     Indication: THROMBOSIS PROPHYLAXIS
     Dosage: PER PROTOCOL ? CHRONIC
  5. CELEBREX [Suspect]
     Indication: THROMBOSIS PROPHYLAXIS
     Dosage: 200MG DAILY PO CHRONIC
     Route: 048
  6. FLUOXETINE HCL [Concomitant]
  7. ASPIRIN [Suspect]
     Indication: CORONARY ARTERY DISEASE
     Dosage: 81MG DAILY PO  RECENT
     Route: 048
  8. METOPROLOL TARTRATE [Concomitant]
  9. SENOKOT [Concomitant]
  10. POTASSIUM CHLORIDE [Concomitant]
  11. CALCIUM + VIT D [Concomitant]
  12. VITAMIN D [Concomitant]
  13. FOSAMAX [Concomitant]

REACTIONS (2)
  - HAEMORRHAGIC ANAEMIA [None]
  - UPPER GASTROINTESTINAL HAEMORRHAGE [None]
